FAERS Safety Report 7746206-5 (Version None)
Quarter: 2011Q3

REPORT INFORMATION
  Report Type: 
  Country: None (occurrence: None)
  Receive Date: 20110913
  Receipt Date: 20110908
  Transmission Date: 20111222
  Serious: Yes (Death, Life-Threatening, Hospitalization)
  Sender: FDA-Public Use
  Company Number: TW-BAYER-2011-041656

PATIENT
  Age: 43 Year
  Sex: Male
  Weight: 64.6 kg

DRUGS (17)
  1. SORAFENIB (RAF KINASE INHIBITOR) [Suspect]
     Dosage: 600 MG, QD(200 MG AM/ 400 MG PM)
     Route: 048
     Dates: start: 20110601, end: 20110620
  2. MEK INHIBITOR (DIHYDROXYPROP-DIFLU-METHOXYPHEN-CYCLOPROPA-SULFAMI) [Suspect]
     Indication: HEPATIC NEOPLASM MALIGNANT
     Dosage: 50 MG, BID(ADDT'L LOT#'S-200464,200467)
     Route: 048
     Dates: start: 20110422, end: 20110516
  3. CALCIUM POLYSTYRENE SULFONATE [Concomitant]
     Indication: HYPERKALAEMIA
     Dosage: 40 G, UNK
     Route: 048
     Dates: start: 20110621, end: 20110628
  4. SORAFENIB (RAF KINASE INHIBITOR) [Suspect]
     Indication: HEPATIC NEOPLASM MALIGNANT
     Dosage: 600 MG, QD(200 MG AM/ 400 MG PM)
     Route: 048
     Dates: start: 20110422, end: 20110516
  5. METRONIDAZOLE [Concomitant]
     Indication: RASH
     Dosage: UNK
     Route: 061
     Dates: start: 20110506
  6. SPIRONOLACTONE [Concomitant]
     Indication: ASCITES
     Dosage: 25 MG, BID
     Route: 048
     Dates: start: 20110513, end: 20110523
  7. HUMAN INSULIN [Concomitant]
     Dosage: 10 ML/VIAL, 100U/ML
     Route: 042
     Dates: start: 20110621, end: 20110628
  8. ESTAZOLAM [Concomitant]
     Indication: INSOMNIA
     Dosage: 2 MG, QD
     Route: 048
     Dates: start: 20110506
  9. FUROSEMIDE [Concomitant]
     Indication: HYPOALBUMINAEMIA
     Dosage: 20 MG, QD
     Route: 042
     Dates: start: 20110515, end: 20110517
  10. DEXTROSE [Concomitant]
     Indication: UPPER GASTROINTESTINAL HAEMORRHAGE
     Dosage: 320 ML + 32 U
     Route: 042
     Dates: start: 20110621, end: 20110628
  11. ALBUMIN (HUMAN) [Concomitant]
     Indication: HYPOALBUMINAEMIA
     Dosage: 50 ML, UNK
     Route: 042
     Dates: start: 20110622, end: 20110624
  12. MEK INHIBITOR (DIHYDROXYPROP-DIFLU-METHOXYPHEN-CYCLOPROPA-SULFAMI) [Suspect]
     Dosage: 50 MG, BID(ADDT'L LOT#'S-200464,200467)
     Route: 048
     Dates: start: 20110601, end: 20110620
  13. FUROSEMIDE [Concomitant]
     Indication: ASCITES
     Dosage: 80 MG, QD
     Route: 048
     Dates: start: 20110513, end: 20110515
  14. FUROSEMIDE [Concomitant]
     Indication: DIURETIC THERAPY
     Dosage: 40 MG, ONCE
     Route: 042
     Dates: start: 20110515, end: 20110515
  15. ACETAMINOPHEN [Concomitant]
     Indication: PAIN
     Dosage: 1000 MG, QD
     Route: 048
     Dates: start: 20110513
  16. SPIRONOLACTONE [Concomitant]
     Dosage: 75 MG, BID
     Route: 048
     Dates: start: 20110523, end: 20110620
  17. FUROSEMIDE [Concomitant]
     Dosage: 20 MG/2ML/AMP, POST ALBUMIN INFUSION
     Dates: start: 20110622, end: 20110624

REACTIONS (5)
  - RESPIRATORY FAILURE [None]
  - SEPSIS [None]
  - RENAL FAILURE ACUTE [None]
  - DYSPNOEA [None]
  - HEPATIC FAILURE [None]
